FAERS Safety Report 24037160 (Version 2)
Quarter: 2024Q3

REPORT INFORMATION
  Report Type: Spontaneous
  Country: US (occurrence: US)
  Receive Date: 20240701
  Receipt Date: 20240701
  Transmission Date: 20241017
  Serious: Yes (Death)
  Sender: ROCHE
  Company Number: US-ROCHE-10000012175

PATIENT
  Sex: Male
  Weight: 79.37 kg

DRUGS (1)
  1. ACTIVASE [Suspect]
     Active Substance: ALTEPLASE
     Indication: Product used for unknown indication
     Route: 042

REACTIONS (4)
  - Signet-ring cell carcinoma [Fatal]
  - White blood cell count decreased [Unknown]
  - Pneumonia klebsiella [Unknown]
  - Off label use [Unknown]
